FAERS Safety Report 4462793-7 (Version None)
Quarter: 2004Q3

REPORT INFORMATION
  Report Type: 
  Country: None (occurrence: None)
  Receive Date: 20040927
  Receipt Date: 20040913
  Transmission Date: 20050211
  Serious: Yes (Other)
  Sender: FDA-Public Use
  Company Number: 2004048863

PATIENT
  Age: 52 Year
  Sex: Male
  Weight: 81.6475 kg

DRUGS (1)
  1. DILANTIN [Suspect]
     Indication: CONVULSION
     Dosage: ORAL
     Route: 048

REACTIONS (4)
  - MASS [None]
  - MASTOID DISORDER [None]
  - PERIPHERAL T-CELL LYMPHOMA UNSPECIFIED [None]
  - PSEUDO LYMPHOMA [None]
